FAERS Safety Report 6361285-8 (Version None)
Quarter: 2009Q3

REPORT INFORMATION
  Report Type: 
  Country: None (occurrence: None)
  Receive Date: 20090918
  Receipt Date: 20090914
  Transmission Date: 20100115
  Serious: Yes (Other)
  Sender: FDA-Public Use
  Company Number: AT-AVENTIS-200915405EU

PATIENT
  Age: 29 Year
  Sex: Male

DRUGS (4)
  1. LOVENOX [Suspect]
     Indication: PULMONARY EMBOLISM
     Route: 058
     Dates: start: 20090727, end: 20090806
  2. SINTROM [Suspect]
     Indication: PULMONARY EMBOLISM
     Dosage: DOSE: UNK
     Route: 048
     Dates: start: 20090727
  3. SERACTIL [Concomitant]
     Indication: PULMONARY EMBOLISM
     Route: 048
     Dates: start: 20090726, end: 20090726
  4. LOVENOX [Concomitant]
     Route: 058
     Dates: start: 20090726, end: 20090727

REACTIONS (1)
  - ALANINE AMINOTRANSFERASE INCREASED [None]
